FAERS Safety Report 11554775 (Version 1)
Quarter: 2015Q3

REPORT INFORMATION
  Report Type: Spontaneous
  Country: US (occurrence: US)
  Receive Date: 20150903
  Receipt Date: 20150903
  Transmission Date: 20151125
  Serious: No
  Sender: FDA-Public Use
  Company Number: US-ELI_LILLY_AND_COMPANY-US201009000236

PATIENT
  Age: 59 Year
  Sex: Male

DRUGS (3)
  1. HUMALOG [Suspect]
     Active Substance: INSULIN LISPRO
     Dosage: 15 U, AS NEEDED
     Dates: start: 20050831
  2. LEVEMIR [Concomitant]
     Active Substance: INSULIN DETEMIR
     Indication: TYPE 2 DIABETES MELLITUS
  3. HUMALOG [Suspect]
     Active Substance: INSULIN LISPRO
     Indication: TYPE 2 DIABETES MELLITUS
     Dosage: 15 U, AS NEEDED
     Dates: start: 20050831

REACTIONS (9)
  - Abscess [Unknown]
  - Hypoacusis [Unknown]
  - Pain [Unknown]
  - Tooth extraction [Unknown]
  - Infection [Unknown]
  - Sinusitis [Unknown]
  - Malaise [Unknown]
  - Stress [Unknown]
  - Haemorrhage [Unknown]

NARRATIVE: CASE EVENT DATE: 20050831
